FAERS Safety Report 7367953-3 (Version None)
Quarter: 2011Q1

REPORT INFORMATION
  Report Type: 
  Country: None (occurrence: None)
  Receive Date: 20110322
  Receipt Date: 20110316
  Transmission Date: 20110831
  Serious: Yes (Life-Threatening)
  Sender: FDA-Public Use
  Company Number: PHHY2010JP68482

PATIENT
  Age: 76 Year
  Sex: Female

DRUGS (3)
  1. GLYBURIDE [Concomitant]
  2. AMLODIPINE [Concomitant]
  3. FEMARA [Suspect]
     Indication: BREAST CANCER
     Route: 048

REACTIONS (2)
  - HYPOKALAEMIA [None]
  - METABOLIC ALKALOSIS [None]
